FAERS Safety Report 21234421 (Version 1)
Quarter: 2022Q3

REPORT INFORMATION
  Report Type: Spontaneous
  Country: US (occurrence: US)
  Receive Date: 20220820
  Receipt Date: 20220820
  Transmission Date: 20221027
  Serious: No
  Sender: FDA-Public Use
  Company Number: US-Accord-264766

PATIENT
  Sex: Male
  Weight: 102.06 kg

DRUGS (4)
  1. METHOTREXATE [Suspect]
     Active Substance: METHOTREXATE
     Indication: Psoriasis
     Dosage: 6 TABLETS ORALLY, EVERY SUNDAY
     Route: 048
  2. AMLODIPINE [Concomitant]
     Active Substance: AMLODIPINE BESYLATE
  3. ATENOLOL [Concomitant]
     Active Substance: ATENOLOL
  4. FOLIC ACID [Concomitant]
     Active Substance: FOLIC ACID
     Dosage: EVERY DAY

REACTIONS (1)
  - Product storage error [Unknown]
